FAERS Safety Report 13316216 (Version 3)
Quarter: 2017Q1

REPORT INFORMATION
  Report Type: Report from Study
  Country: ES (occurrence: ES)
  Receive Date: 20170310
  Receipt Date: 20170317
  Transmission Date: 20170428
  Serious: Yes (Death, Other)
  Sender: FDA-Public Use
  Company Number: ES-AMGEN-ESPSP2017035565

PATIENT
  Age: 24 Year
  Sex: Male

DRUGS (2)
  1. DEXAMETHASONE. [Concomitant]
     Active Substance: DEXAMETHASONE
     Dosage: UNK
     Dates: start: 20170215
  2. BLINATUMOMAB [Suspect]
     Active Substance: BLINATUMOMAB
     Indication: ACUTE LYMPHOCYTIC LEUKAEMIA
     Dosage: UNK
     Route: 065
     Dates: start: 20170221

REACTIONS (7)
  - Macule [Unknown]
  - Bone pain [Unknown]
  - Thrombocytopenia [Unknown]
  - Oral candidiasis [Unknown]
  - General physical health deterioration [Unknown]
  - Death [Fatal]
  - Pyrexia [Unknown]

NARRATIVE: CASE EVENT DATE: 2017
